FAERS Safety Report 6813932-1 (Version None)
Quarter: 2010Q3

REPORT INFORMATION
  Report Type: 
  Country: None (occurrence: None)
  Receive Date: 20100702
  Receipt Date: 20100217
  Transmission Date: 20110219
  Serious: Yes (Hospitalization, Other)
  Sender: FDA-Public Use
  Company Number: US-ASTRAZENECA-2008UW27631

PATIENT
  Age: 25259 Day
  Sex: Female
  Weight: 78.9 kg

DRUGS (11)
  1. SEROQUEL [Suspect]
     Indication: DEPRESSION
     Dosage: 100 TO 200 MG
     Route: 048
     Dates: start: 20041209, end: 20070605
  2. ZYPREXA [Concomitant]
     Route: 065
  3. EFFEXOR XR [Concomitant]
     Dosage: 37.5 MG TO 75 MG
     Dates: start: 20050110
  4. DIOVAN [Concomitant]
     Dates: start: 20050516
  5. OYST-CAL [Concomitant]
     Dates: start: 20040824
  6. HYDROCODONE BITARTRATE AND ACETAMINOPHEN [Concomitant]
     Dosage: 5-500 MG
     Dates: start: 20050726
  7. METHOTREXATE [Concomitant]
     Dates: start: 20040803
  8. NABUMETONE [Concomitant]
     Dates: start: 20050808
  9. PREDNISONE TAB [Concomitant]
     Dates: start: 20050808
  10. PREVACID [Concomitant]
     Dates: start: 20040916
  11. APAP W/ CODEINE [Concomitant]
     Dates: start: 20050117

REACTIONS (3)
  - DIABETES MELLITUS [None]
  - NEUROPATHY PERIPHERAL [None]
  - PANCREATITIS [None]
